FAERS Safety Report 18060269 (Version 1)
Quarter: 2020Q3

REPORT INFORMATION
  Report Type: Spontaneous
  Country: US (occurrence: US)
  Receive Date: 20200723
  Receipt Date: 20200723
  Transmission Date: 20201103
  Serious: No
  Sender: FDA-Public Use
  Company Number: None

PATIENT
  Age: 56 Year
  Sex: Female

DRUGS (3)
  1. LEFLUNOMIDE 10MG [Concomitant]
  2. HUMIRA [Suspect]
     Active Substance: ADALIMUMAB
  3. ENBREL [Suspect]
     Active Substance: ETANERCEPT
     Dosage: ?          OTHER FREQUENCY:WEEKLY;?

REACTIONS (2)
  - Alopecia [None]
  - Stomatitis [None]

NARRATIVE: CASE EVENT DATE: 20200723
